FAERS Safety Report 8550806-2 (Version None)
Quarter: 2012Q3

REPORT INFORMATION
  Report Type: 
  Country: None (occurrence: None)
  Receive Date: 20120730
  Receipt Date: 20120723
  Transmission Date: 20120928
  Serious: Yes (Other)
  Sender: FDA-Public Use
  Company Number: US-JNJFOC-20120708079

PATIENT
  Sex: Female

DRUGS (2)
  1. BUTRANS [Suspect]
     Indication: PAIN
     Route: 065
  2. TRAMADOL HYDROCHLORIDE [Suspect]
     Indication: PAIN
     Dosage: 6 TIMES A DAY
     Route: 065

REACTIONS (1)
  - RENAL IMPAIRMENT [None]
